FAERS Safety Report 5723967-8 (Version None)
Quarter: 2008Q2

REPORT INFORMATION
  Report Type: 
  Country: None (occurrence: None)
  Receive Date: 20080428
  Receipt Date: 20080415
  Transmission Date: 20081010
  Serious: Yes (Other)
  Sender: FDA-Public Use
  Company Number: 2008009736

PATIENT
  Age: 23 Year
  Weight: 68.0396 kg

DRUGS (1)
  1. LISTERINE WHITENING QUICK DISSOLVING STRIPS (NO ACTIVE INGREDIENT) [Suspect]
     Indication: DENTAL DISORDER PROPHYLAXIS
     Dosage: TWO STRIPS DAILY, ORAL
     Route: 048
     Dates: start: 20080301, end: 20080415

REACTIONS (3)
  - BURNING SENSATION [None]
  - GINGIVAL SWELLING [None]
  - ORAL DISCOMFORT [None]
